FAERS Safety Report 5518688-0 (Version None)
Quarter: 2007Q4

REPORT INFORMATION
  Report Type: 
  Country: None (occurrence: None)
  Receive Date: 20071115
  Receipt Date: 20071105
  Transmission Date: 20080405
  Serious: Yes (Hospitalization)
  Sender: FDA-Public Use
  Company Number: US-SHR-US-2007-033036

PATIENT
  Age: 51 Year
  Sex: Female
  Weight: 49.887 kg

DRUGS (6)
  1. BETASERON [Suspect]
     Indication: SECONDARY PROGRESSIVE MULTIPLE SCLEROSIS
     Dosage: 2 MIU, EVERY 2D
     Route: 058
     Dates: start: 20070801, end: 20070831
  2. CYMBALTA [Concomitant]
  3. DITROPAN                                /USA/ [Concomitant]
  4. TOPRAMAX [Concomitant]
  5. RITALIN [Concomitant]
  6. TYLENOL [Concomitant]
     Indication: PREMEDICATION

REACTIONS (5)
  - ASTHENIA [None]
  - INFLUENZA LIKE ILLNESS [None]
  - MALAISE [None]
  - MULTIPLE SCLEROSIS [None]
  - PARALYSIS [None]
